FAERS Safety Report 5047506-2 (Version None)
Quarter: 2006Q3

REPORT INFORMATION
  Report Type: 
  Country: None (occurrence: None)
  Receive Date: 20060710
  Receipt Date: 20060710
  Transmission Date: 20061208
  Serious: Yes (Hospitalization)
  Sender: FDA-Public Use
  Company Number: None

PATIENT
  Sex: Male
  Weight: 91 kg

DRUGS (3)
  1. TAXOTERE [Suspect]
     Dosage: 70 MG
     Dates: start: 20060626
  2. LOVENOX [Suspect]
     Dosage: 320 MG
     Dates: start: 20060703
  3. CAMPTOSAR [Suspect]
     Dosage: 100 MG
     Dates: start: 20060626

REACTIONS (12)
  - ABDOMINAL DISTENSION [None]
  - BLOOD CREATININE INCREASED [None]
  - BLOOD PRESSURE SYSTOLIC DECREASED [None]
  - BLOOD UREA INCREASED [None]
  - BODY TEMPERATURE DECREASED [None]
  - DIZZINESS POSTURAL [None]
  - HEART RATE INCREASED [None]
  - NEUTROPHIL COUNT DECREASED [None]
  - ORAL INTAKE REDUCED [None]
  - PAIN [None]
  - URINE OUTPUT DECREASED [None]
  - WHITE BLOOD CELL COUNT DECREASED [None]
